FAERS Safety Report 17447192 (Version 1)
Quarter: 2020Q1

REPORT INFORMATION
  Report Type: Spontaneous
  Country: US (occurrence: US)
  Receive Date: 20200221
  Receipt Date: 20200221
  Transmission Date: 20200409
  Serious: Yes (Hospitalization, Other)
  Sender: FDA-Public Use
  Company Number: US-ABBVIE-20K-163-3286795-00

PATIENT
  Sex: Male
  Weight: 63.56 kg

DRUGS (1)
  1. SYNTHROID [Suspect]
     Active Substance: LEVOTHYROXINE SODIUM
     Indication: HYPOTHYROIDISM
     Route: 048
     Dates: start: 1995

REACTIONS (11)
  - Neck mass [Recovered/Resolved]
  - Non-Hodgkin^s lymphoma [Not Recovered/Not Resolved]
  - Weight decreased [Not Recovered/Not Resolved]
  - Cerebrovascular accident [Unknown]
  - Neck mass [Recovered/Resolved]
  - Cerebrovascular accident [Unknown]
  - Fatigue [Not Recovered/Not Resolved]
  - Hemiparesis [Recovered/Resolved]
  - Mobility decreased [Recovered/Resolved]
  - Fatigue [Recovered/Resolved]
  - Amyotrophic lateral sclerosis [Unknown]

NARRATIVE: CASE EVENT DATE: 2010
